FAERS Safety Report 7384965-4 (Version None)
Quarter: 2011Q1

REPORT INFORMATION
  Report Type: 
  Country: None (occurrence: None)
  Receive Date: 20110330
  Receipt Date: 20110323
  Transmission Date: 20110831
  Serious: Yes (Death, Other)
  Sender: FDA-Public Use
  Company Number: FI-CEPHALON-2011001296

PATIENT
  Sex: Male
  Weight: 62 kg

DRUGS (15)
  1. LENALIDOMIDE [Suspect]
     Route: 048
     Dates: start: 20101104, end: 20101124
  2. CEPHALEXIN [Concomitant]
     Dates: start: 20101030, end: 20101106
  3. BENDAMUSTINE HCL [Suspect]
     Route: 042
     Dates: start: 20110111
  4. LENALIDOMIDE [Suspect]
     Indication: MANTLE CELL LYMPHOMA
     Route: 048
     Dates: start: 20100930
  5. BENDAMUSTINE HCL [Suspect]
     Indication: MANTLE CELL LYMPHOMA
     Route: 041
     Dates: start: 20101104, end: 20101105
  6. PREDNISOLONE [Concomitant]
     Dates: start: 20101025, end: 20101029
  7. LENALIDOMIDE [Suspect]
     Route: 048
     Dates: end: 20110115
  8. NEULASTA [Concomitant]
     Dates: start: 20101004, end: 20110106
  9. ALLOPURINOL [Concomitant]
     Dates: start: 20100924
  10. MERONEM [Concomitant]
     Dates: start: 20101025, end: 20101029
  11. BENDAMUSTINE HCL [Suspect]
     Route: 042
     Dates: start: 20110105, end: 20110106
  12. NEUPOGEN [Concomitant]
  13. LENALIDOMIDE [Suspect]
     Route: 041
     Dates: start: 20100920, end: 20101001
  14. RITUXIMAB [Concomitant]
     Indication: MANTLE CELL LYMPHOMA
     Dates: start: 20100930, end: 20110105
  15. BACTRIM [Concomitant]
     Dates: start: 20100924

REACTIONS (2)
  - PNEUMONIA [None]
  - NEUTROPENIC INFECTION [None]
